FAERS Safety Report 22651688 (Version 2)
Quarter: 2023Q4

REPORT INFORMATION
  Report Type: Spontaneous
  Country: US (occurrence: US)
  Receive Date: 20230628
  Receipt Date: 20231222
  Transmission Date: 20240109
  Serious: No
  Sender: FDA-Public Use
  Company Number: US-CTI BIOPHARMA-2023US03522

PATIENT

DRUGS (13)
  1. VONJO [Suspect]
     Active Substance: PACRITINIB
     Indication: Myelofibrosis
     Dosage: 100 MG, BID
  2. VONJO [Suspect]
     Active Substance: PACRITINIB
     Dosage: 100 MG, DAILY
     Route: 048
  3. ZETIA [Suspect]
     Active Substance: EZETIMIBE
     Indication: Product used for unknown indication
     Dosage: UNK
  4. ATORVASTATIN [Concomitant]
     Active Substance: ATORVASTATIN
     Dosage: UNK
  5. MINERALS\VITAMINS [Concomitant]
     Active Substance: MINERALS\VITAMINS
  6. FOLIC ACID [Concomitant]
     Active Substance: FOLIC ACID
  7. HYDROXYUREA [Concomitant]
     Active Substance: HYDROXYUREA
  8. METOPROLOL [Concomitant]
     Active Substance: METOPROLOL
  9. ASPIRIN [Concomitant]
     Active Substance: ASPIRIN
  10. METFORMIN [Concomitant]
     Active Substance: METFORMIN HYDROCHLORIDE
  11. ONDANSETRON [Concomitant]
     Active Substance: ONDANSETRON
  12. RETACRIT [Concomitant]
     Active Substance: EPOETIN ALFA-EPBX
  13. VITAMIN AND MINERAL COMPLEX [Concomitant]

REACTIONS (2)
  - Weight decreased [Recovering/Resolving]
  - Diabetes mellitus [Unknown]
